FAERS Safety Report 14387390 (Version 3)
Quarter: 2018Q4

REPORT INFORMATION
  Report Type: Spontaneous
  Country: US (occurrence: US)
  Receive Date: 20180115
  Receipt Date: 20181009
  Transmission Date: 20190204
  Serious: Yes (Other)
  Sender: FDA-Public Use
  Company Number: US-DSJP-DSU-2017-149064

PATIENT

DRUGS (2)
  1. BENICAR HCT [Suspect]
     Active Substance: HYDROCHLOROTHIAZIDE\OLMESARTAN MEDOXOMIL
     Dosage: 40-12.5MG,UNK
     Dates: start: 20080418, end: 20140123
  2. BENICAR HCT [Suspect]
     Active Substance: HYDROCHLOROTHIAZIDE\OLMESARTAN MEDOXOMIL
     Indication: PRODUCT USED FOR UNKNOWN INDICATION
     Dosage: 40-25MG,QD
     Route: 048
     Dates: start: 20080418, end: 20140123

REACTIONS (4)
  - Peptic ulcer [Unknown]
  - Sprue-like enteropathy [Recovering/Resolving]
  - Gastric ulcer [Recovered/Resolved]
  - Helicobacter test positive [Unknown]

NARRATIVE: CASE EVENT DATE: 20080418
